FAERS Safety Report 24437058 (Version 1)
Quarter: 2024Q4

REPORT INFORMATION
  Report Type: Spontaneous
  Country: US (occurrence: US)
  Receive Date: 20241015
  Receipt Date: 20241015
  Transmission Date: 20250114
  Serious: Yes (Life-Threatening, Hospitalization)
  Sender: MYLAN
  Company Number: US-MYLANLABS-2024M1091883

PATIENT
  Age: 67 Year
  Sex: Female

DRUGS (4)
  1. HEPARIN [Suspect]
     Active Substance: HEPARIN SODIUM
     Indication: Acute myocardial infarction
     Dosage: UNK
     Route: 065
  2. ARGATROBAN [Suspect]
     Active Substance: ARGATROBAN
     Indication: Thrombosis prophylaxis
     Dosage: UNK
     Route: 065
  3. ENOXAPARIN [Suspect]
     Active Substance: ENOXAPARIN
     Indication: Thrombosis prophylaxis
     Dosage: UNK
     Route: 065
  4. PROCRIT [Suspect]
     Active Substance: ERYTHROPOIETIN
     Indication: Thrombosis prophylaxis
     Dosage: UNK
     Route: 065

REACTIONS (3)
  - Heparin-induced thrombocytopenia [Unknown]
  - Coronary vascular graft occlusion [Unknown]
  - Drug ineffective [Unknown]
